FAERS Safety Report 26169242 (Version 1)
Quarter: 2025Q4

REPORT INFORMATION
  Report Type: Spontaneous
  Country: US (occurrence: None)
  Receive Date: 20251216
  Receipt Date: 20251216
  Transmission Date: 20260118
  Serious: No
  Sender: FDA-CTU
  Company Number: None

PATIENT
  Age: 73 Year
  Sex: Female
  Weight: 54.43 kg

DRUGS (1)
  1. LENVIMA [Suspect]
     Active Substance: LENVATINIB
     Indication: Endometrial cancer
     Dosage: 14 MG DAILY ORAL
     Route: 048
     Dates: start: 20251023

REACTIONS (3)
  - Renal failure [None]
  - Therapy cessation [None]
  - Endometrial cancer recurrent [None]

NARRATIVE: CASE EVENT DATE: 20251216
